FAERS Safety Report 16779231 (Version 1)
Quarter: 2019Q3

REPORT INFORMATION
  Report Type: Spontaneous
  Country: US (occurrence: US)
  Receive Date: 20190906
  Receipt Date: 20190906
  Transmission Date: 20191005
  Serious: Yes (Other)
  Sender: FDA-Public Use
  Company Number: US-AUROBINDO-AUR-APL-2019-057376

PATIENT

DRUGS (3)
  1. VINCRISTINE SULFATE. [Suspect]
     Active Substance: VINCRISTINE SULFATE
     Indication: PRODUCT USED FOR UNKNOWN INDICATION
     Dosage: UNK
     Route: 065
  2. ICLUSIG [Suspect]
     Active Substance: PONATINIB
     Indication: ACUTE LYMPHOCYTIC LEUKAEMIA
     Dosage: 15 MILLIGRAM, ONCE A DAY
     Route: 048
     Dates: start: 201810
  3. ICLUSIG [Suspect]
     Active Substance: PONATINIB
     Dosage: UNK
     Route: 065
     Dates: start: 201905

REACTIONS (3)
  - Cataract [Unknown]
  - Foot fracture [Recovered/Resolved]
  - Dermatitis contact [Unknown]

NARRATIVE: CASE EVENT DATE: 201905
